FAERS Safety Report 21601423 (Version 8)
Quarter: 2023Q2

REPORT INFORMATION
  Report Type: Spontaneous
  Country: US (occurrence: US)
  Receive Date: 20221116
  Receipt Date: 20230522
  Transmission Date: 20230722
  Serious: No
  Sender: FDA-Public Use
  Company Number: US-PFIZER INC-PV202200093211

PATIENT
  Age: 65 Year
  Sex: Male
  Weight: 108.86 kg

DRUGS (2)
  1. SOMAVERT [Suspect]
     Active Substance: PEGVISOMANT
     Indication: Acromegaly
     Dosage: 15 MG, 2X/WEEK (EVERY WEDNESDAY AND SATURDAY OF THE WEEK)
     Route: 058
     Dates: start: 20221026
  2. SOMAVERT [Suspect]
     Active Substance: PEGVISOMANT
     Dosage: 15 MG (5 TIMES PER WEEK)
     Route: 058
     Dates: start: 202210, end: 202301

REACTIONS (6)
  - Drug ineffective [Unknown]
  - Constipation [Unknown]
  - Emotional disorder [Unknown]
  - Anger [Unknown]
  - Malaise [Unknown]
  - Off label use [Unknown]

NARRATIVE: CASE EVENT DATE: 20220101
